FAERS Safety Report 11413530 (Version 1)
Quarter: 2015Q3

REPORT INFORMATION
  Report Type: Spontaneous
  Country: US (occurrence: US)
  Receive Date: 20150821
  Receipt Date: 20150821
  Transmission Date: 20151125
  Serious: No
  Sender: FDA-Public Use
  Company Number: US-ELI_LILLY_AND_COMPANY-US201211003340

PATIENT
  Age: 73 Year
  Sex: Female

DRUGS (1)
  1. HUMULIN N [Suspect]
     Active Substance: INSULIN HUMAN
     Indication: DIABETES MELLITUS
     Dosage: 35 U, EACH MORNING
     Dates: start: 1965

REACTIONS (3)
  - Skin injury [Unknown]
  - Visual impairment [Unknown]
  - Dissociation [Unknown]

NARRATIVE: CASE EVENT DATE: 20121107
